FAERS Safety Report 5954143-1 (Version None)
Quarter: 2008Q4

REPORT INFORMATION
  Report Type: 
  Country: None (occurrence: None)
  Receive Date: 20081117
  Receipt Date: 20081112
  Transmission Date: 20090506
  Serious: Yes (Other)
  Sender: FDA-Public Use
  Company Number: US-JNJFOC-20081103341

PATIENT
  Age: 54 Year
  Sex: Female
  Weight: 59.42 kg

DRUGS (8)
  1. ELMIRON [Suspect]
     Indication: BLADDER PAIN
     Route: 048
  2. XANAX [Concomitant]
     Route: 065
  3. ASPIRIN [Concomitant]
     Route: 048
  4. ASACOL [Concomitant]
     Route: 065
  5. HYDROCHLOROTHIAZIDE [Concomitant]
     Route: 065
  6. LACTAID [Concomitant]
     Route: 065
  7. PRILOSEC [Concomitant]
     Route: 065
  8. VITAMIN B-12 [Concomitant]
     Route: 065

REACTIONS (5)
  - COLITIS ULCERATIVE [None]
  - OSTEOPOROSIS [None]
  - PITTING OEDEMA [None]
  - PLATELET COUNT DECREASED [None]
  - WEIGHT DECREASED [None]
